FAERS Safety Report 12605684 (Version 1)
Quarter: 2016Q3

REPORT INFORMATION
  Report Type: Spontaneous
  Country: GB (occurrence: GB)
  Receive Date: 20160729
  Receipt Date: 20160729
  Transmission Date: 20161109
  Serious: Yes (Disabling, Other)
  Sender: FDA-Public Use
  Company Number: GB-ACCORD-042648

PATIENT
  Age: 35 Year
  Sex: Male
  Weight: 77.56 kg

DRUGS (7)
  1. VENTOLIN [Concomitant]
     Active Substance: ALBUTEROL SULFATE
  2. CODEINE [Concomitant]
     Active Substance: CODEINE
  3. MONTELUKAST [Suspect]
     Active Substance: MONTELUKAST SODIUM
     Indication: ASTHMA PROPHYLAXIS
     Dosage: EVENING OR NIGHT BEFORE BED
     Route: 048
     Dates: start: 2014, end: 20160707
  4. ACRIVASTINE [Concomitant]
     Active Substance: ACRIVASTINE
  5. SERETIDE [Concomitant]
     Active Substance: FLUTICASONE PROPIONATE\SALMETEROL XINAFOATE
  6. CANDESARTAN [Concomitant]
     Active Substance: CANDESARTAN
  7. SERTRALINE [Concomitant]
     Active Substance: SERTRALINE HYDROCHLORIDE

REACTIONS (8)
  - Depression [Recovering/Resolving]
  - Suicidal ideation [Recovering/Resolving]
  - Abnormal dreams [Unknown]
  - Anxiety [Recovering/Resolving]
  - Malaise [Unknown]
  - Sleep disorder [Recovering/Resolving]
  - Nightmare [Recovering/Resolving]
  - Autophobia [Recovering/Resolving]

NARRATIVE: CASE EVENT DATE: 2014
